FAERS Safety Report 9666632 (Version 1)
Quarter: 2013Q4

REPORT INFORMATION
  Report Type: Report from Study
  Country: US (occurrence: US)
  Receive Date: 20131104
  Receipt Date: 20131104
  Transmission Date: 20140711
  Serious: Yes (Hospitalization)
  Sender: FDA-Public Use
  Company Number: US-SHIRE-ALL1-2013-07502

PATIENT
  Age: 30 Year
  Sex: Male

DRUGS (3)
  1. IDURSULFASE [Suspect]
     Indication: MUCOPOLYSACCHARIDOSIS II
     Dosage: UNK, UNKNOWN
     Route: 041
     Dates: start: 20100204
  2. SPIRONOLACTONE [Concomitant]
     Indication: CARDIOVASCULAR DISORDER
     Dosage: 150 MG, 2X/DAY:BID
     Route: 048
     Dates: start: 20120411
  3. LACTULOSE [Concomitant]
     Indication: HYPERAMMONAEMIA
     Dosage: 30 G, 2X/DAY:BID
     Route: 048
     Dates: start: 20120331

REACTIONS (1)
  - Fluid overload [Unknown]
